FAERS Safety Report 9232895 (Version 1)
Quarter: 2013Q2

REPORT INFORMATION
  Report Type: Spontaneous
  Country: US (occurrence: None)
  Receive Date: 20130415
  Receipt Date: 20130415
  Transmission Date: 20140414
  Serious: Yes (Other)
  Sender: FDA-Public Use
  Company Number: None

PATIENT
  Age: 28 Year
  Sex: Female
  Weight: 56.7 kg

DRUGS (1)
  1. MIRENA [Suspect]
     Indication: CONTRACEPTION
     Dates: start: 20100818, end: 20130413

REACTIONS (10)
  - Urticaria [None]
  - Increased tendency to bruise [None]
  - Skin discolouration [None]
  - Vaginal discharge [None]
  - Alopecia [None]
  - Hair growth abnormal [None]
  - Acne [None]
  - Anxiety [None]
  - Mood swings [None]
  - Amenorrhoea [None]
